FAERS Safety Report 4475298-4 (Version None)
Quarter: 2004Q4

REPORT INFORMATION
  Report Type: 
  Country: None (occurrence: None)
  Receive Date: 20041012
  Receipt Date: 20040930
  Transmission Date: 20050328
  Serious: Yes (Other)
  Sender: FDA-Public Use
  Company Number: 2004236567US

PATIENT
  Age: 75 Year
  Sex: Male
  Weight: 68.9 kg

DRUGS (6)
  1. BEXTRA [Suspect]
     Indication: EXOSTOSIS
     Dosage: 10 MG, BID, ORAL
     Route: 048
     Dates: start: 20040701
  2. AVELOX [Suspect]
     Indication: BRONCHIECTASIS
     Dates: end: 20040924
  3. HYTRIN [Concomitant]
  4. KLONOPIN [Concomitant]
  5. AMBIEN [Concomitant]
  6. MULTIVITAMIN [Concomitant]

REACTIONS (14)
  - ABASIA [None]
  - ANAPHYLACTIC REACTION [None]
  - ARTHRALGIA [None]
  - BACK PAIN [None]
  - DRUG INTERACTION [None]
  - ERYTHEMA [None]
  - FACE INJURY [None]
  - FEELING HOT [None]
  - HAEMOPTYSIS [None]
  - MEMORY IMPAIRMENT [None]
  - OEDEMA PERIPHERAL [None]
  - REFUSAL OF TREATMENT BY PATIENT [None]
  - SYNCOPE [None]
  - VOMITING [None]
